FAERS Safety Report 10483079 (Version 1)
Quarter: 2014Q3

REPORT INFORMATION
  Report Type: Report from Study
  Country: MX (occurrence: MX)
  Receive Date: 20140930
  Receipt Date: 20140930
  Transmission Date: 20150326
  Serious: Yes (Death, Hospitalization)
  Sender: FDA-Public Use
  Company Number: MX-ORION CORPORATION ORION PHARMA-ENTC2014-0349

PATIENT
  Age: 64 Year
  Sex: Female

DRUGS (1)
  1. STALEVO [Suspect]
     Active Substance: CARBIDOPA\ENTACAPONE\LEVODOPA
     Indication: PARKINSON^S DISEASE
     Dosage: 50/12.5/200 MG
     Route: 048

REACTIONS (4)
  - Fall [Unknown]
  - Head injury [Unknown]
  - Aspiration bronchial [Fatal]
  - Cerebral thrombosis [Unknown]

NARRATIVE: CASE EVENT DATE: 201409
